FAERS Safety Report 17563240 (Version 2)
Quarter: 2020Q3

REPORT INFORMATION
  Report Type: Spontaneous
  Country: JP (occurrence: JP)
  Receive Date: 20200319
  Receipt Date: 20200917
  Transmission Date: 20201102
  Serious: Yes (Hospitalization, Other)
  Sender: FDA-Public Use
  Company Number: JP-NOVOPROD-718696

PATIENT
  Age: 39 Year
  Sex: Female

DRUGS (1)
  1. LEVEMIR [Suspect]
     Active Substance: INSULIN DETEMIR
     Indication: GESTATIONAL DIABETES
     Dosage: 5 IU, QD (BEFORE EVENING MEAL)
     Route: 058

REACTIONS (5)
  - Foetal death [Unknown]
  - Diabetic ketoacidosis [Unknown]
  - Maternal exposure during pregnancy [Recovered/Resolved]
  - Weight decreased [Unknown]
  - Fulminant type 1 diabetes mellitus [Unknown]
